FAERS Safety Report 22079233 (Version 3)
Quarter: 2023Q2

REPORT INFORMATION
  Report Type: Report from Study
  Country: CA (occurrence: CA)
  Receive Date: 20230309
  Receipt Date: 20230606
  Transmission Date: 20230722
  Serious: Yes (Hospitalization)
  Sender: FDA-Public Use
  Company Number: CA-PUMA BIOTECHNOLOGY, LTD.-2022-PUM-CA000989

PATIENT

DRUGS (12)
  1. NERLYNX [Suspect]
     Active Substance: NERATINIB
     Indication: HER2 positive breast cancer
     Dosage: 120 MG, DAILY
     Route: 048
     Dates: start: 20220602, end: 20220626
  2. NERLYNX [Suspect]
     Active Substance: NERATINIB
     Dosage: 160 MG, DAILY
     Route: 048
     Dates: start: 20220627
  3. NERLYNX [Suspect]
     Active Substance: NERATINIB
     Dosage: 200 MG, DAILY
     Route: 048
     Dates: start: 20220803
  4. NERLYNX [Suspect]
     Active Substance: NERATINIB
     Dosage: 240 MG, DAILY
     Route: 048
     Dates: end: 202302
  5. NERLYNX [Suspect]
     Active Substance: NERATINIB
     Dosage: 120 MG, DAILY
     Route: 048
     Dates: start: 20230515, end: 20230528
  6. NERLYNX [Suspect]
     Active Substance: NERATINIB
     Dosage: 160 MG, DAILY
     Route: 048
     Dates: start: 20230529
  7. ANASTROZOLE [Concomitant]
     Active Substance: ANASTROZOLE
     Indication: Product used for unknown indication
     Dosage: UNK
     Dates: start: 20220530
  8. VITAMIN D [Concomitant]
     Active Substance: VITAMIN D NOS
     Indication: Product used for unknown indication
     Dosage: UNK
  9. VITAMIN B [Concomitant]
     Active Substance: VITAMIN B
     Indication: Product used for unknown indication
     Dosage: UNK
  10. PROBIOTICS NOS [Concomitant]
     Active Substance: PROBIOTICS NOS
     Indication: Product used for unknown indication
     Dosage: UNK
  11. CALCIUM [Concomitant]
     Active Substance: CALCIUM
     Indication: Product used for unknown indication
     Dosage: UNK
  12. LOPERAMIDE [Concomitant]
     Active Substance: LOPERAMIDE
     Indication: Prophylaxis against diarrhoea

REACTIONS (12)
  - Cholecystectomy [Recovered/Resolved]
  - Upper-airway cough syndrome [Recovered/Resolved]
  - Rhinalgia [Recovered/Resolved]
  - Dizziness [Unknown]
  - Cough [Unknown]
  - COVID-19 [Unknown]
  - Night sweats [Not Recovered/Not Resolved]
  - Bone pain [Unknown]
  - Product prescribing error [Recovered/Resolved]
  - Product dose omission in error [Unknown]
  - Diarrhoea [Not Recovered/Not Resolved]
  - Muscle spasms [Unknown]

NARRATIVE: CASE EVENT DATE: 20220601
